FAERS Safety Report 12782681 (Version 3)
Quarter: 2016Q4

REPORT INFORMATION
  Report Type: Other
  Country: CA (occurrence: CA)
  Receive Date: 20160927
  Receipt Date: 20161026
  Transmission Date: 20170207
  Serious: Yes (Other)
  Sender: FDA-Public Use
  Company Number: CA-APOTEX-2016AP011929

PATIENT

DRUGS (1)
  1. APO-MONTELUKAST [Suspect]
     Active Substance: MONTELUKAST SODIUM
     Indication: PRODUCT USED FOR UNKNOWN INDICATION
     Dosage: UNK, QD
     Route: 065

REACTIONS (4)
  - Hypersensitivity [Recovered/Resolved]
  - Product substitution issue [Recovered/Resolved]
  - Respiratory depression [Recovered/Resolved]
  - Condition aggravated [Recovered/Resolved]
